FAERS Safety Report 7672506-3 (Version None)
Quarter: 2011Q3

REPORT INFORMATION
  Report Type: 
  Country: None (occurrence: None)
  Receive Date: 20110809
  Receipt Date: 20110802
  Transmission Date: 20111222
  Serious: Yes (Other)
  Sender: FDA-Public Use
  Company Number: US-PFIZER INC-2011139556

PATIENT
  Sex: Female
  Weight: 68 kg

DRUGS (7)
  1. CALCIUM [Concomitant]
     Dosage: UNK
  2. CHANTIX [Suspect]
     Dosage: UNK
     Dates: start: 20110601, end: 20110101
  3. LIPITOR [Concomitant]
     Indication: BLOOD CHOLESTEROL INCREASED
     Dosage: UNK
     Route: 048
  4. CHANTIX [Suspect]
     Indication: SMOKING CESSATION THERAPY
     Dosage: UNK
     Route: 048
  5. PRILOSEC [Concomitant]
     Indication: ULCER
     Dosage: UNK
     Route: 048
  6. SYNTHROID [Concomitant]
     Indication: HYPOTHYROIDISM
     Dosage: UNK
     Route: 048
  7. ZYRTEC [Concomitant]
     Indication: SINUS DISORDER
     Dosage: UNK
     Route: 048

REACTIONS (2)
  - AGITATION [None]
  - EMOTIONAL DISORDER [None]
